FAERS Safety Report 10953225 (Version 2)
Quarter: 2015Q2

REPORT INFORMATION
  Report Type: Spontaneous
  Country: BR (occurrence: BR)
  Receive Date: 20150325
  Receipt Date: 20150421
  Transmission Date: 20150821
  Serious: Yes (Hospitalization)
  Sender: FDA-Public Use
  Company Number: BR-PFIZER INC-2015099167

PATIENT
  Age: 79 Year
  Sex: Male

DRUGS (1)
  1. FIBRASE [Suspect]
     Active Substance: CHLORAMPHENICOL
     Indication: WOUND
     Dosage: APPLIED IN THE MORNING, AS SOON AS HE WOKE UP, AFTER SHOWER AT NIGHT AND EVERYTIME HE LEFT THE HOUSE

REACTIONS (1)
  - Phlebitis [Recovering/Resolving]

NARRATIVE: CASE EVENT DATE: 201503
